FAERS Safety Report 16945563 (Version 1)
Quarter: 2019Q4

REPORT INFORMATION
  Report Type: Spontaneous
  Country: IT (occurrence: IT)
  Receive Date: 20191022
  Receipt Date: 20191022
  Transmission Date: 20200122
  Serious: Yes (Other)
  Sender: FDA-Public Use
  Company Number: IT-MYLANLABS-2019M1099793

PATIENT
  Age: 40 Year
  Sex: Female
  Weight: 77 kg

DRUGS (3)
  1. EPCLUSA [Suspect]
     Active Substance: SOFOSBUVIR\VELPATASVIR
     Indication: HEPATITIS C
     Dosage: 500 MILLIGRAM, QD
     Route: 048
     Dates: start: 20190502
  2. INDOMETACIN [Suspect]
     Active Substance: INDOMETHACIN
     Indication: HEADACHE
     Dosage: 50 MILLIGRAM, PRN
     Dates: start: 20190501, end: 20190501
  3. ENALAPRIL [Suspect]
     Active Substance: ENALAPRIL
     Indication: CARDIAC FAILURE
     Dosage: 10 MICROGRAM, QD
     Route: 048

REACTIONS (4)
  - Azotaemia [Recovering/Resolving]
  - Blood sodium decreased [Recovering/Resolving]
  - Hyperuricaemia [Recovering/Resolving]
  - Blood creatine increased [Recovering/Resolving]

NARRATIVE: CASE EVENT DATE: 20190529
